FAERS Safety Report 9345247 (Version 1)
Quarter: 2013Q2

REPORT INFORMATION
  Report Type: Spontaneous
  Country: US (occurrence: US)
  Receive Date: 20130612
  Receipt Date: 20130612
  Transmission Date: 20140414
  Serious: Yes (Other)
  Sender: FDA-Public Use
  Company Number: US-ELI_LILLY_AND_COMPANY-USA020921592

PATIENT
  Sex: Female

DRUGS (3)
  1. HUMULIN [Suspect]
     Indication: DIABETES MELLITUS
     Dosage: 30 U, DAILY (1/D)
     Route: 058
  2. HUMULIN [Suspect]
     Indication: DIABETES MELLITUS
     Dosage: 3 U, 3/D
     Route: 058
  3. HUMALOG LISPRO [Suspect]
     Dosage: UNK

REACTIONS (8)
  - Loss of consciousness [Unknown]
  - Convulsion [Unknown]
  - Visual acuity reduced [Unknown]
  - Blood glucose decreased [Unknown]
  - Impaired gastric emptying [Unknown]
  - Neuropathy peripheral [Unknown]
  - Carpal tunnel syndrome [Unknown]
  - Blood glucose increased [Unknown]
